FAERS Safety Report 7983510-X (Version None)
Quarter: 2011Q4

REPORT INFORMATION
  Report Type: 
  Country: None (occurrence: None)
  Receive Date: 20111215
  Receipt Date: 20111201
  Transmission Date: 20120403
  Serious: Yes (Death, Hospitalization)
  Sender: FDA-Public Use
  Company Number: AU-CELGENEUS-008-21880-11114279

PATIENT
  Sex: Male

DRUGS (1)
  1. REVLIMID [Suspect]
     Indication: MULTIPLE MYELOMA
     Dosage: 25 MILLIGRAM
     Route: 048
     Dates: end: 20110201

REACTIONS (4)
  - MULTIPLE MYELOMA [None]
  - CACHEXIA [None]
  - HYPERCALCAEMIA [None]
  - CONFUSIONAL STATE [None]
